FAERS Safety Report 7626120-6 (Version None)
Quarter: 2011Q3

REPORT INFORMATION
  Report Type: 
  Country: None (occurrence: None)
  Receive Date: 20110713
  Receipt Date: 20110628
  Transmission Date: 20111222
  Serious: Yes (Other)
  Sender: FDA-Public Use
  Company Number: 2011MA008215

PATIENT
  Sex: Female

DRUGS (1)
  1. METOCLOPRAMIDE [Suspect]
     Indication: PRODUCT USED FOR UNKNOWN INDICATION
     Dosage: 10 MG, PO
     Route: 048
     Dates: start: 20070701, end: 20070901

REACTIONS (4)
  - EMOTIONAL DISORDER [None]
  - TARDIVE DYSKINESIA [None]
  - INJURY [None]
  - FAMILY STRESS [None]
